FAERS Safety Report 9562489 (Version 1)
Quarter: 2013Q3

REPORT INFORMATION
  Report Type: Spontaneous
  Country: US (occurrence: US)
  Receive Date: 20130927
  Receipt Date: 20130927
  Transmission Date: 20140515
  Serious: Yes (Hospitalization, Other)
  Sender: FDA-Public Use
  Company Number: US-PFIZER INC-2013276609

PATIENT
  Sex: Female

DRUGS (9)
  1. ZITHROMAX [Suspect]
     Indication: PYREXIA
     Dosage: 250 MG, UNK
     Route: 048
     Dates: start: 20110627
  2. ZITHROMAX [Suspect]
     Indication: VIRAL INFECTION
  3. ZITHROMAX [Suspect]
     Indication: BRONCHITIS
  4. ZITHROMAX [Suspect]
     Indication: VULVOVAGINAL MYCOTIC INFECTION
  5. AZITHROMYCIN [Suspect]
     Indication: PYREXIA
     Dosage: 250 MG, UNK
     Route: 048
     Dates: start: 20110627
  6. AZITHROMYCIN [Suspect]
     Indication: VIRAL INFECTION
  7. AZITHROMYCIN [Suspect]
     Indication: BRONCHITIS
  8. AZITHROMYCIN [Suspect]
     Indication: VULVOVAGINAL MYCOTIC INFECTION
  9. DIFLUCAN [Concomitant]
     Indication: VULVOVAGINAL MYCOTIC INFECTION
     Dosage: 150 MG, UNK
     Dates: start: 20110627

REACTIONS (3)
  - Stevens-Johnson syndrome [Unknown]
  - Pulmonary embolism [Unknown]
  - Alopecia [Unknown]
